FAERS Safety Report 9605553 (Version 4)
Quarter: 2013Q4

REPORT INFORMATION
  Report Type: Spontaneous
  Country: US (occurrence: US)
  Receive Date: 20131008
  Receipt Date: 20131226
  Transmission Date: 20140711
  Serious: No
  Sender: FDA-Public Use
  Company Number: US-PFIZER INC-2013286337

PATIENT
  Sex: Female

DRUGS (3)
  1. LYRICA [Suspect]
     Dosage: 200 MG, THREE TIMES PER DAY
  2. LYRICA [Suspect]
     Dosage: 100MG TWO CAPSULES TWICE DAILY
  3. NEURONTIN [Concomitant]
     Dosage: UNK

REACTIONS (2)
  - Incorrect dosage administered [Unknown]
  - Pain [Unknown]
